FAERS Safety Report 13839490 (Version 1)
Quarter: 2017Q3

REPORT INFORMATION
  Report Type: Spontaneous
  Country: US (occurrence: US)
  Receive Date: 20170805
  Receipt Date: 20170805
  Transmission Date: 20171127
  Serious: No
  Sender: FDA-Public Use
  Company Number: None

PATIENT
  Age: 75 Year
  Sex: Male

DRUGS (11)
  1. FOLIC ACID. [Concomitant]
     Active Substance: FOLIC ACID
  2. CLOPIDOGREL [Suspect]
     Active Substance: CLOPIDOGREL BISULFATE
     Indication: CEREBROVASCULAR ACCIDENT
     Route: 048
     Dates: start: 20170109, end: 20170127
  3. VANCOMYCIN [Concomitant]
     Active Substance: VANCOMYCIN
  4. CHOLECALCIFEROL [Concomitant]
     Active Substance: CHOLECALCIFEROL
  5. ASCORBIC ACID. [Concomitant]
     Active Substance: ASCORBIC ACID
  6. OMEGA 3 FATTY ACIDS [Concomitant]
     Active Substance: OMEGA-3 FATTY ACIDS
  7. ROSUVASTATIN. [Concomitant]
     Active Substance: ROSUVASTATIN
  8. ASPIRIN. [Concomitant]
     Active Substance: ASPIRIN
  9. RAMIPRIL. [Concomitant]
     Active Substance: RAMIPRIL
  10. COENZYME Q10 [Concomitant]
     Active Substance: UBIDECARENONE
  11. DHEA [Concomitant]
     Active Substance: PRASTERONE

REACTIONS (2)
  - Burning sensation [None]
  - Rash [None]

NARRATIVE: CASE EVENT DATE: 20170125
